FAERS Safety Report 9288942 (Version 2)
Quarter: 2013Q2

REPORT INFORMATION
  Report Type: Spontaneous
  Country: GB (occurrence: GB)
  Receive Date: 20130514
  Receipt Date: 20130619
  Transmission Date: 20140414
  Serious: Yes (Other)
  Sender: FDA-Public Use
  Company Number: GB-ABBOTT-13P-167-1062433-00

PATIENT
  Sex: Female
  Weight: 55.7 kg

DRUGS (2)
  1. HUMIRA [Suspect]
     Indication: RHEUMATOID ARTHRITIS
     Route: 058
     Dates: start: 2005, end: 2013
  2. CALCICHEW D3 [Concomitant]
     Dosage: TT
     Route: 048

REACTIONS (2)
  - Memory impairment [Unknown]
  - Amnesia [Unknown]
